FAERS Safety Report 7538253-3 (Version None)
Quarter: 2011Q2

REPORT INFORMATION
  Report Type: 
  Country: None (occurrence: None)
  Receive Date: 20110609
  Receipt Date: 20070227
  Transmission Date: 20111010
  Serious: Yes (Death, Other)
  Sender: FDA-Public Use
  Company Number: PHMT2005CA00841

PATIENT
  Sex: Male

DRUGS (1)
  1. CLOZAPINE [Suspect]
     Route: 048
     Dates: start: 20051031

REACTIONS (5)
  - NASAL SEPTUM DEVIATION [None]
  - AGITATION [None]
  - DRUG ABUSE [None]
  - DEATH [None]
  - SUICIDAL IDEATION [None]
